FAERS Safety Report 10346050 (Version 7)
Quarter: 2017Q4

REPORT INFORMATION
  Report Type: Report from Study
  Country: GB (occurrence: GB)
  Receive Date: 20140728
  Receipt Date: 20171212
  Transmission Date: 20180320
  Serious: Yes (Death, Hospitalization)
  Sender: FDA-Public Use
  Company Number: GB-JNJFOC-20140713372

PATIENT
  Age: 74 Year
  Sex: Male
  Weight: 63 kg

DRUGS (19)
  1. TRAMADOL. [Concomitant]
     Active Substance: TRAMADOL
     Dates: end: 20140728
  2. DOMPERIDONE [Concomitant]
     Active Substance: DOMPERIDONE
     Dates: end: 20140728
  3. SERTRALINE [Concomitant]
     Active Substance: SERTRALINE HYDROCHLORIDE
     Dates: end: 20140728
  4. GABAPENTIN. [Concomitant]
     Active Substance: GABAPENTIN
     Dates: end: 20140728
  5. IBRUTINIB [Suspect]
     Active Substance: IBRUTINIB
     Indication: LYMPHOCYTIC LYMPHOMA
     Route: 048
     Dates: start: 20140507, end: 20140718
  6. IBRUTINIB [Suspect]
     Active Substance: IBRUTINIB
     Indication: CHRONIC LYMPHOCYTIC LEUKAEMIA
     Route: 048
     Dates: end: 20140723
  7. PREDNISOLONE. [Concomitant]
     Active Substance: PREDNISOLONE
  8. IBRUTINIB [Suspect]
     Active Substance: IBRUTINIB
     Indication: LYMPHOCYTIC LYMPHOMA
     Route: 048
     Dates: end: 20140723
  9. ADCAL [Concomitant]
     Active Substance: CALCIUM CARBONATE
     Dates: end: 20140728
  10. OMEPRAZOLE. [Concomitant]
     Active Substance: OMEPRAZOLE
     Dates: end: 20120728
  11. MEROPENEM. [Concomitant]
     Active Substance: MEROPENEM
  12. DOXYCYCLINE. [Concomitant]
     Active Substance: DOXYCYCLINE
  13. IBRUTINIB [Suspect]
     Active Substance: IBRUTINIB
     Indication: CHRONIC LYMPHOCYTIC LEUKAEMIA
     Route: 048
     Dates: start: 20140507, end: 20140718
  14. ACYCLOVIR. [Concomitant]
     Active Substance: ACYCLOVIR
     Dates: end: 20140728
  15. FLUCONAZOLE. [Concomitant]
     Active Substance: FLUCONAZOLE
     Dates: end: 20140728
  16. ALLOPURINOL. [Concomitant]
     Active Substance: ALLOPURINOL
     Dates: end: 20140728
  17. ZOLEDRONIC ACID. [Concomitant]
     Active Substance: ZOLEDRONIC ACID
  18. CO-AMOXICLAV [Concomitant]
     Active Substance: AMOXICILLIN\CLAVULANIC ACID
  19. FOLIC ACID. [Concomitant]
     Active Substance: FOLIC ACID
     Dates: end: 20140728

REACTIONS (6)
  - Gastric haemorrhage [Fatal]
  - Aspergillus infection [Fatal]
  - Richter^s syndrome [Fatal]
  - Thrombocytopenia [Not Recovered/Not Resolved]
  - Haemolysis [Unknown]
  - Gastric ulcer [Fatal]

NARRATIVE: CASE EVENT DATE: 20140716
